FAERS Safety Report 24270197 (Version 1)
Quarter: 2024Q3

REPORT INFORMATION
  Report Type: Spontaneous
  Country: CA (occurrence: CA)
  Receive Date: 20240830
  Receipt Date: 20240830
  Transmission Date: 20241016
  Serious: Yes (Other)
  Sender: PFIZER
  Company Number: CA-PFIZER INC-202400245726

PATIENT
  Age: 49 Year
  Sex: Female

DRUGS (1)
  1. RITUXIMAB [Suspect]
     Active Substance: RITUXIMAB
     Indication: Myositis
     Dosage: 1000 MG
     Route: 042

REACTIONS (7)
  - Drug ineffective [Unknown]
  - Asthenia [Unknown]
  - Hypokinesia [Unknown]
  - Illness [Unknown]
  - Pulmonary congestion [Unknown]
  - Inappropriate schedule of product administration [Unknown]
  - Off label use [Unknown]
